FAERS Safety Report 9411377 (Version 1)
Quarter: 2013Q3

REPORT INFORMATION
  Report Type: Spontaneous
  Country: US (occurrence: US)
  Receive Date: 20130722
  Receipt Date: 20130722
  Transmission Date: 20140515
  Serious: Yes (Hospitalization)
  Sender: FDA-Public Use
  Company Number: PHHY2013US075950

PATIENT
  Age: 39 Year
  Sex: Male

DRUGS (4)
  1. MITOMYCIN [Suspect]
     Indication: APPENDIX CANCER
     Route: 033
  2. DOXORUBICIN [Suspect]
     Indication: APPENDIX CANCER
     Route: 033
  3. 5-FLUOROURACIL [Suspect]
     Indication: APPENDIX CANCER
     Route: 033
  4. LEUCOVORIN [Concomitant]
     Indication: APPENDIX CANCER

REACTIONS (2)
  - Gastric perforation [Unknown]
  - Abdominal sepsis [Unknown]
